FAERS Safety Report 7047122-7 (Version None)
Quarter: 2010Q4

REPORT INFORMATION
  Report Type: 
  Country: None (occurrence: None)
  Receive Date: 20101012
  Receipt Date: 20100930
  Transmission Date: 20110411
  Serious: Yes (Hospitalization)
  Sender: FDA-Public Use
  Company Number: 210US004072

PATIENT
  Age: 53 Year
  Sex: Male

DRUGS (1)
  1. AMBISOME [Suspect]
     Indication: CANDIDIASIS
     Dosage: 300 MG, UID/QD, IV NOS
     Route: 042
     Dates: start: 20100806, end: 20100820

REACTIONS (1)
  - DIABETES INSIPIDUS [None]
